FAERS Safety Report 12895118 (Version 2)
Quarter: 2017Q1

REPORT INFORMATION
  Report Type: Spontaneous
  Country: AU (occurrence: AU)
  Receive Date: 20161029
  Receipt Date: 20170207
  Transmission Date: 20170428
  Serious: Yes (Other)
  Sender: FDA-Public Use
  Company Number: AU-AMGEN-AUSSP2016149916

PATIENT
  Sex: Female

DRUGS (6)
  1. ENBREL [Suspect]
     Active Substance: ETANERCEPT
     Dosage: UNK
     Route: 065
     Dates: start: 2005
  2. ENBREL [Suspect]
     Active Substance: ETANERCEPT
     Indication: RHEUMATOID ARTHRITIS
     Dosage: 50 MG, WEEKLY
     Route: 065
  3. PREDNISONE. [Concomitant]
     Active Substance: PREDNISONE
     Dosage: 5 MG
     Dates: start: 1998
  4. METHOTREXATE. [Concomitant]
     Active Substance: METHOTREXATE
     Dosage: 50 MG (1.2 ML)
     Dates: start: 2000
  5. ARAVA [Concomitant]
     Active Substance: LEFLUNOMIDE
     Dosage: 10 MG
     Dates: start: 2000, end: 2004
  6. ARAVA [Concomitant]
     Active Substance: LEFLUNOMIDE
     Dosage: 10 MG
     Dates: start: 2012

REACTIONS (9)
  - Weight increased [Unknown]
  - Injection site erythema [Unknown]
  - Product quality issue [Unknown]
  - Injection site swelling [Unknown]
  - Abdominal distension [Unknown]
  - Injection site pruritus [Unknown]
  - Rheumatoid arthritis [Recovered/Resolved]
  - Injection site pain [Unknown]
  - Diarrhoea [Unknown]

NARRATIVE: CASE EVENT DATE: 2005
